FAERS Safety Report 5514112-2 (Version None)
Quarter: 2007Q4

REPORT INFORMATION
  Report Type: 
  Country: None (occurrence: None)
  Receive Date: 20071106
  Receipt Date: 20070817
  Transmission Date: 20080405
  Serious: Yes (Other)
  Sender: FDA-Public Use
  Company Number: US200708003760

PATIENT
  Age: 53 Year
  Sex: Female

DRUGS (6)
  1. PROZAC [Suspect]
  2. WELLBUTRIN [Concomitant]
  3. LITHIUM CARBONATE [Concomitant]
  4. CLONAZEPAM [Concomitant]
  5. TRAZODONE HCL [Concomitant]
  6. LEVOTHYROXINE SODIUM [Concomitant]

REACTIONS (5)
  - ANGER [None]
  - FLUID RETENTION [None]
  - SEROTONIN SYNDROME [None]
  - SUICIDAL IDEATION [None]
  - WEIGHT INCREASED [None]
